FAERS Safety Report 5990478-4 (Version None)
Quarter: 2008Q4

REPORT INFORMATION
  Report Type: 
  Country: None (occurrence: None)
  Receive Date: 20081211
  Receipt Date: 20081208
  Transmission Date: 20090506
  Serious: Yes (Hospitalization)
  Sender: FDA-Public Use
  Company Number: FR-BRISTOL-MYERS SQUIBB COMPANY-14436125

PATIENT
  Age: 36 Year
  Sex: Male

DRUGS (9)
  1. AMIKLIN [Suspect]
     Dates: start: 20080910, end: 20080929
  2. IZILOX [Suspect]
     Dates: start: 20080819, end: 20080904
  3. TAVANIC [Suspect]
     Dosage: STOPPED ON 25SEP08.
     Dates: start: 20080910, end: 20080924
  4. PIRILENE [Suspect]
     Dosage: WITHDRAWN ON 31AUG08.
     Dates: start: 20080419, end: 20080831
  5. CLARITHROMYCIN [Concomitant]
     Dates: start: 20080910
  6. ANSATIPINE [Concomitant]
     Dates: start: 20080910
  7. MYAMBUTOL [Concomitant]
     Indication: PULMONARY TUBERCULOSIS
  8. RIFAMPICIN [Concomitant]
     Dates: start: 20080819
  9. ISONIAZID [Concomitant]

REACTIONS (1)
  - CYTOLYTIC HEPATITIS [None]
